FAERS Safety Report 9656731 (Version 1)
Quarter: 2013Q4

REPORT INFORMATION
  Report Type: Spontaneous
  Country: US (occurrence: None)
  Receive Date: 20131022
  Receipt Date: 20131022
  Transmission Date: 20140711
  Serious: Yes (Disabling)
  Sender: FDA-Public Use
  Company Number: 2013038469

PATIENT
  Age: 80 Year
  Sex: Female

DRUGS (20)
  1. CONFIDEX [Suspect]
     Dosage: INTRAVENOUS (NOT OTHERWISE SEPCFIEID)
     Route: 042
     Dates: start: 20121231, end: 20121231
  2. LASILIX (FUROSEMIDE) [Suspect]
     Dosage: FIRST 40 MG X 3 IN IV THEN WITH AN ELECTRIC SYRINGE PUMP AT INCREASED DOSE (250 MG THEN 500 MG)
     Route: 042
     Dates: start: 20121231, end: 20130108
  3. AUGMENTIN [Suspect]
     Route: 048
     Dates: start: 20121231, end: 20130107
  4. HYDROCORTISONE [Suspect]
     Dosage: INTRAVENOUS (NOT OTHERWISE SPECIFIED)
     Route: 042
     Dates: start: 20121231, end: 20130101
  5. VITAMIN K1 [Suspect]
     Dosage: INTRAVENOUS (NOT OTHERWISE SPECIFIED)
     Route: 042
     Dates: start: 20130101, end: 20130101
  6. HYPNOVEL [Suspect]
     Dosage: INTRAVENOUS (NOT OTHERWISE SPECIFIED)
     Route: 042
     Dates: start: 20130101, end: 20130101
  7. SOLUPRED (PREDNISOLONE) [Suspect]
     Route: 048
     Dates: start: 20121230, end: 20130101
  8. ATORVASTATIN (ATORVASTATIN) [Suspect]
     Route: 048
     Dates: end: 20130108
  9. KARDEGIC (ACETYLSALICYLATE LYSINE) [Suspect]
     Route: 048
     Dates: end: 20130108
  10. ZYLORIC [Suspect]
     Route: 048
     Dates: end: 20130108
  11. CEFPODOXINE (CEFPODOXINE) [Concomitant]
  12. SOLUPRD /00016201/) (PREDNISLONE) [Concomitant]
  13. BISOPROLOL (BISOPROLOL) [Concomitant]
  14. SPIRONOLACTONE (SPIRONOLACTONE) [Concomitant]
  15. SERESTA (OXAZEPAM) [Concomitant]
  16. HEMIGOXINE NATIVELLE (DIGOXIN) [Concomitant]
  17. CANDESARTAN CILEXETIL (CANDEARTAN CILEXETIL) [Concomitant]
  18. PREVISCAN (FLUINDIONE) [Concomitant]
  19. LEVOTHYROXINE (LEVVOTHYROXINE) [Concomitant]
  20. PARIET (RABEPRAZOLE SODIUM) [Concomitant]

REACTIONS (9)
  - Blindness [None]
  - Brain stem auditory evoked response abnormal [None]
  - Presbyacusis [None]
  - Deafness unilateral [None]
  - General physical health deterioration [None]
  - Somnolence [None]
  - Renal failure acute [None]
  - Balance disorder [None]
  - Inflammation [None]
